FAERS Safety Report 9483001 (Version 7)
Quarter: 2014Q4

REPORT INFORMATION
  Report Type: Spontaneous
  Country: US (occurrence: US)
  Receive Date: 20130828
  Receipt Date: 20141202
  Transmission Date: 20150529
  Serious: Yes (Hospitalization, Other)
  Sender: FDA-Public Use
  Company Number: US-ACTELION-A-US2013-87344

PATIENT
  Age: 79 Year
  Sex: Female

DRUGS (2)
  1. SILDENAFIL. [Concomitant]
     Active Substance: SILDENAFIL
  2. VENTAVIS [Suspect]
     Active Substance: ILOPROST
     Indication: PULMONARY ARTERIAL HYPERTENSION
     Dosage: 6-9XD
     Route: 055
     Dates: start: 20100818

REACTIONS (12)
  - Transfusion [Unknown]
  - Pneumonia [Unknown]
  - Drug dose omission [Unknown]
  - Dyspnoea [Unknown]
  - Cardiac failure congestive [Unknown]
  - Pulmonary arterial hypertension [Unknown]
  - Respiratory distress [Unknown]
  - Swelling [Unknown]
  - Chronic obstructive pulmonary disease [Unknown]
  - Oedema [Unknown]
  - Cellulitis [Unknown]
  - Speech disorder [Unknown]

NARRATIVE: CASE EVENT DATE: 20130815
